FAERS Safety Report 6543714-X (Version None)
Quarter: 2010Q1

REPORT INFORMATION
  Report Type: 
  Country: None (occurrence: None)
  Receive Date: 20100119
  Receipt Date: 20100119
  Transmission Date: 20100710
  Serious: Yes (Other)
  Sender: FDA-Public Use
  Company Number: None

PATIENT
  Sex: Male
  Weight: 81.6475 kg

DRUGS (2)
  1. TYLENOL [Suspect]
     Indication: MUSCULOSKELETAL STIFFNESS
     Dosage: 650 MG 2 CAPS EVERY 8 HRS  PO
     Route: 048
     Dates: start: 20100110, end: 20100115
  2. TYLENOL [Suspect]
     Indication: MYALGIA
     Dosage: 650 MG 2 CAPS EVERY 8 HRS  PO
     Route: 048
     Dates: start: 20100110, end: 20100115

REACTIONS (2)
  - ABDOMINAL PAIN UPPER [None]
  - DIARRHOEA [None]
